FAERS Safety Report 6408883-0 (Version None)
Quarter: 2009Q4

REPORT INFORMATION
  Report Type: 
  Country: None (occurrence: None)
  Receive Date: 20091021
  Receipt Date: 20091009
  Transmission Date: 20100525
  Serious: Yes (Hospitalization, Other)
  Sender: FDA-Public Use
  Company Number: AR-ROCHE-661282

PATIENT
  Age: 24 Year
  Sex: Male

DRUGS (2)
  1. ROACCUTAN [Suspect]
     Indication: ACNE
     Route: 048
     Dates: start: 20090801, end: 20090901
  2. ROACCUTAN [Suspect]
     Route: 048
     Dates: start: 20090930, end: 20091001

REACTIONS (2)
  - COLITIS [None]
  - LOWER GASTROINTESTINAL HAEMORRHAGE [None]
